FAERS Safety Report 12761373 (Version 2)
Quarter: 2016Q4

REPORT INFORMATION
  Report Type: Report from Study
  Country: FR (occurrence: FR)
  Receive Date: 20160920
  Receipt Date: 20161013
  Transmission Date: 20170207
  Serious: Yes (Hospitalization, Disabling, Other)
  Sender: FDA-Public Use
  Company Number: FR-ROCHE-1549598

PATIENT
  Age: 58 Year
  Sex: Female

DRUGS (5)
  1. RANIBIZUMAB [Suspect]
     Active Substance: RANIBIZUMAB
     Dosage: UNK
     Route: 031
     Dates: start: 20141204
  2. RANIBIZUMAB [Suspect]
     Active Substance: RANIBIZUMAB
     Dosage: UNK
     Route: 031
     Dates: start: 20141001
  3. RANIBIZUMAB [Suspect]
     Active Substance: RANIBIZUMAB
     Dosage: UNK
     Route: 031
     Dates: start: 20141029, end: 20141029
  4. RANIBIZUMAB [Suspect]
     Active Substance: RANIBIZUMAB
     Indication: DIABETIC RETINAL OEDEMA
     Dosage: UNK
     Route: 031
     Dates: start: 20140903
  5. RANIBIZUMAB [Suspect]
     Active Substance: RANIBIZUMAB
     Dosage: INJECTION IN THE RIGHT EYE
     Route: 031
     Dates: start: 20160113

REACTIONS (15)
  - Cardiac arrest [Unknown]
  - Coma [Unknown]
  - Tendon disorder [Not Recovered/Not Resolved]
  - Staphylococcal infection [Recovered/Resolved]
  - Ocular discomfort [Recovered/Resolved]
  - Arteritis [Unknown]
  - Blood calcium decreased [Unknown]
  - General physical health deterioration [Unknown]
  - Sleep apnoea syndrome [Unknown]
  - Mobility decreased [Unknown]
  - Eye irritation [Unknown]
  - Pain in extremity [Unknown]
  - Carpal tunnel syndrome [Unknown]
  - Dizziness [Unknown]
  - Ocular hyperaemia [Unknown]

NARRATIVE: CASE EVENT DATE: 201510
